FAERS Safety Report 9382179 (Version 1)
Quarter: 2013Q3

REPORT INFORMATION
  Report Type: Spontaneous
  Country: US (occurrence: None)
  Receive Date: 20130702
  Receipt Date: 20130702
  Transmission Date: 20140515
  Serious: Yes (Other)
  Sender: FDA-Public Use
  Company Number: None

PATIENT
  Age: 26 Year
  Sex: Female
  Weight: 54.43 kg

DRUGS (2)
  1. LAVIV [Suspect]
     Dosage: 1 CC TO EACH SIDE OF FACE Q MONTH INTRADERMAL INJECTION
     Route: 023
     Dates: start: 20130521
  2. LAVIV [Suspect]
     Indication: SCAR
     Dosage: 1 CC TO EACH SIDE OF FACE Q MONTH INTRADERMAL INJECTION
     Route: 023
     Dates: start: 20130521

REACTIONS (2)
  - Skin necrosis [None]
  - Vascular occlusion [None]
